FAERS Safety Report 24648772 (Version 1)
Quarter: 2024Q4

REPORT INFORMATION
  Report Type: Spontaneous
  Country: US (occurrence: US)
  Receive Date: 20241121
  Receipt Date: 20241121
  Transmission Date: 20250114
  Serious: No
  Sender: ALVOGEN
  Company Number: None

PATIENT

DRUGS (1)
  1. TERIPARATIDE [Suspect]
     Active Substance: TERIPARATIDE
     Indication: Product used for unknown indication
     Dosage: 250 MCG/ML?EXPIRATION DATE: 31-JUL-2024

REACTIONS (4)
  - Device malfunction [Unknown]
  - Device defective [Unknown]
  - Device mechanical issue [Unknown]
  - Drug dose omission by device [Unknown]
